FAERS Safety Report 23495325 (Version 1)
Quarter: 2024Q1

REPORT INFORMATION
  Report Type: Spontaneous
  Country: US (occurrence: None)
  Receive Date: 20240207
  Receipt Date: 20240207
  Transmission Date: 20240410
  Serious: Yes (Death)
  Sender: FDA-Public Use
  Company Number: None

PATIENT
  Age: 61 Year
  Sex: Female

DRUGS (2)
  1. PROGRAF [Suspect]
     Active Substance: TACROLIMUS
     Indication: Immunodeficiency
     Dosage: OTHER FREQUENCY : IN THE MORNING;?
  2. PROGRAF [Suspect]
     Active Substance: TACROLIMUS
     Dosage: OTHER FREQUENCY : IN THE EVENING;?

REACTIONS (1)
  - Death [None]
